FAERS Safety Report 9465529 (Version 4)
Quarter: 2013Q4

REPORT INFORMATION
  Report Type: Spontaneous
  Country: AU (occurrence: AU)
  Receive Date: 20130820
  Receipt Date: 20131120
  Transmission Date: 20140711
  Serious: Yes (Life-Threatening, Hospitalization, Other)
  Sender: FDA-Public Use
  Company Number: AU-AMGEN-AUSSP2013057167

PATIENT
  Age: 61 Year
  Sex: Male

DRUGS (17)
  1. SENSIPAR [Suspect]
     Indication: HYPERPARATHYROIDISM SECONDARY
     Dosage: 30 MG, UNK
     Route: 065
     Dates: start: 20130325, end: 20130809
  2. ARANESP [Concomitant]
     Indication: PRODUCT USED FOR UNKNOWN INDICATION
     Route: 065
  3. ALDOMET                            /00000101/ [Concomitant]
  4. ASPIRIN [Concomitant]
  5. AVAPRO [Concomitant]
  6. BETALOC                            /00376902/ [Concomitant]
  7. CADUET [Concomitant]
     Dosage: 10/40
     Dates: end: 20130709
  8. CALCITRIOL [Concomitant]
  9. CALTRATE                           /00944201/ [Concomitant]
  10. CENTRUM                            /02217401/ [Concomitant]
  11. DURIDE                             /00653001/ [Concomitant]
  12. FERROSIG [Concomitant]
  13. HEPARIN SODIUM [Concomitant]
  14. MAGNESIUM ASPARTATE [Concomitant]
  15. NEXIUM                             /01479302/ [Concomitant]
  16. PRAZOSIN HYDROCHLORIDE [Concomitant]
  17. RENAGEL                            /01459901/ [Concomitant]

REACTIONS (5)
  - Flank pain [Recovered/Resolved]
  - Haemoglobin decreased [Recovered/Resolved]
  - Haemorrhage [Recovered/Resolved]
  - Renal haemorrhage [Recovered/Resolved]
  - Hypotension [Recovered/Resolved]
